FAERS Safety Report 24011613 (Version 2)
Quarter: 2024Q3

REPORT INFORMATION
  Report Type: Spontaneous
  Country: US (occurrence: US)
  Receive Date: 20240625
  Receipt Date: 20240717
  Transmission Date: 20241017
  Serious: No
  Sender: BIOGEN
  Company Number: US-BIOGEN-2024BI01270549

PATIENT

DRUGS (1)
  1. TECFIDERA [Suspect]
     Active Substance: DIMETHYL FUMARATE
     Indication: Multiple sclerosis
     Route: 050

REACTIONS (5)
  - Hot flush [Not Recovered/Not Resolved]
  - Drug intolerance [Unknown]
  - Back pain [Unknown]
  - Hemiparaesthesia [Unknown]
  - Nerve compression [Unknown]
